FAERS Safety Report 9642505 (Version 5)
Quarter: 2013Q4

REPORT INFORMATION
  Report Type: Spontaneous
  Country: US (occurrence: None)
  Receive Date: 20131021
  Receipt Date: 20131223
  Transmission Date: 20140711
  Serious: Yes (Hospitalization)
  Sender: FDA-Public Use
  Company Number: 151828

PATIENT
  Age: 36 Year
  Sex: Female

DRUGS (1)
  1. LEUCOVORIN CALCIUM [Suspect]
     Indication: COLORECTAL CANCER
     Dosage: 400MG/M2 IV DAY 1 EVERY 14 DAYS
     Route: 042
     Dates: start: 20130614, end: 20130905

REACTIONS (6)
  - Cholestasis [None]
  - Performance status decreased [None]
  - Blood glucose decreased [None]
  - Hepatic steatosis [None]
  - General physical health deterioration [None]
  - Vomiting [None]
